FAERS Safety Report 8646864 (Version 2)
Quarter: 2012Q4

REPORT INFORMATION
  Report Type: 
  Country: US (occurrence: US)
  Receive Date: 20120703
  Receipt Date: 20120912
  Transmission Date: 20130627
  Serious: Yes (Other)
  Sender: FDA-Public Use
  Company Number: US-BAYER-2012-063827

PATIENT
  Age: 19 Year
  Sex: Female
  Weight: 63.49 kg

DRUGS (6)
  1. OCELLA [Suspect]
     Indication: CONTRACEPTION
     Dosage: UNK
     Dates: start: 20091221, end: 20120401
  2. YAZ [Suspect]
     Indication: CONTRACEPTION
     Dosage: UNK
     Dates: start: 200903, end: 201007
  3. AZELASTINE HYDROCHLORIDE [Concomitant]
     Dosage: 0.05% drop
     Dates: start: 20100524
  4. POLYMYXIN [Concomitant]
     Dosage: UNK
     Route: 047
     Dates: start: 20100524
  5. PERCOCET [Concomitant]
  6. IBUPROFEN [Concomitant]

REACTIONS (8)
  - Cholecystectomy [None]
  - Cholelithiasis [None]
  - Cholecystitis chronic [None]
  - Injury [None]
  - Pain [None]
  - Emotional distress [None]
  - Anxiety [None]
  - Pain [None]
